FAERS Safety Report 6192283-5 (Version None)
Quarter: 2009Q2

REPORT INFORMATION
  Report Type: 
  Country: None (occurrence: None)
  Receive Date: 20090515
  Receipt Date: 20090508
  Transmission Date: 20091009
  Serious: Yes (Death, Hospitalization, Disabling, Other)
  Sender: FDA-Public Use
  Company Number: JP-ABBOTT-08P-087-0491159-00

PATIENT
  Age: 70 Year
  Sex: Male

DRUGS (9)
  1. LEUPLIN SR FOR INJECTION [Suspect]
     Indication: PROSTATE CANCER STAGE IV
     Route: 058
     Dates: start: 20080507, end: 20090212
  2. BLOPRESS [Concomitant]
     Indication: HYPERTENSION
     Route: 048
  3. PRORENAL [Concomitant]
     Indication: PAIN
     Route: 048
     Dates: start: 20080801
  4. VASOLAN [Concomitant]
     Indication: HYPERTENSION
     Route: 048
  5. ZADITEN [Concomitant]
     Indication: ASTHMA
     Route: 048
  6. THEO-DUR [Concomitant]
     Indication: ASTHMA
     Route: 048
  7. MUCOSOLVAN [Concomitant]
     Indication: GASTRITIS
     Route: 048
  8. DICETAMIN [Concomitant]
     Indication: GASTRITIS
     Route: 048
  9. ALFAROL [Concomitant]
     Indication: HYPERTENSION
     Route: 048

REACTIONS (3)
  - CENTRAL NERVOUS SYSTEM LYMPHOMA [None]
  - DIPLOPIA [None]
  - TOLOSA-HUNT SYNDROME [None]
